FAERS Safety Report 18035704 (Version 1)
Quarter: 2020Q3

REPORT INFORMATION
  Report Type: Spontaneous
  Country: US (occurrence: US)
  Receive Date: 20200716
  Receipt Date: 20200716
  Transmission Date: 20201103
  Serious: No
  Sender: FDA-Public Use
  Company Number: None

PATIENT
  Age: 60 Year
  Sex: Male

DRUGS (1)
  1. IOPAMIDOL (IOPAMIDOL 261MG/ML INJ) [Suspect]
     Active Substance: IOPAMIDOL
     Indication: COMPUTERISED TOMOGRAM
     Dates: start: 20190228, end: 20190228

REACTIONS (6)
  - Cough [None]
  - Urticaria [None]
  - Nausea [None]
  - Wheezing [None]
  - Dyspnoea [None]
  - Vomiting [None]

NARRATIVE: CASE EVENT DATE: 20190228
